FAERS Safety Report 26015824 (Version 1)
Quarter: 2025Q4

REPORT INFORMATION
  Report Type: Report from Study
  Country: BR (occurrence: BR)
  Receive Date: 20251109
  Receipt Date: 20251109
  Transmission Date: 20260117
  Serious: Yes (Other)
  Sender: BIOGEN
  Company Number: BR-BIOGEN-2025BI01321261

PATIENT
  Age: 21 Year
  Sex: Female
  Weight: 57 kg

DRUGS (16)
  1. TYSABRI [Suspect]
     Active Substance: NATALIZUMAB
     Indication: Multiple sclerosis
     Dosage: INFUSION TIME INCREASED BY 30 MINUTES AS A PRECAUTION.
     Dates: start: 202207
  2. LORAZEPAM [Concomitant]
     Active Substance: LORAZEPAM
     Indication: Anxiety
     Dates: start: 2022
  3. LORAZEPAM [Concomitant]
     Active Substance: LORAZEPAM
     Dates: start: 2022
  4. VENLAFAXINE [Concomitant]
     Active Substance: VENLAFAXINE HYDROCHLORIDE
     Indication: Anxiety
     Dosage: DOSAGE TEXT:150/75
  5. VENLAFAXINE [Concomitant]
     Active Substance: VENLAFAXINE HYDROCHLORIDE
     Indication: Pain
  6. VITAMIN D [Concomitant]
     Active Substance: VITAMIN D NOS
     Indication: Vitamin D decreased
     Dates: start: 2022
  7. VITAMIN D [Concomitant]
     Active Substance: VITAMIN D NOS
  8. VITAMIN D [Concomitant]
     Active Substance: VITAMIN D NOS
     Dosage: 18000 (UNIT NOT INFORMED)
  9. MELATONIN [Concomitant]
     Active Substance: MELATONIN
     Indication: Product used for unknown indication
     Dosage: WHEN NECESSARY
  10. BUPROPION [Concomitant]
     Active Substance: BUPROPION
     Indication: Pain
     Dates: start: 2022
  11. BUPROPION [Concomitant]
     Active Substance: BUPROPION
     Indication: Migraine
  12. ANSITEC (BUSPIRONE) [Concomitant]
     Indication: Malaise
  13. ANSITEC (BUSPIRONE) [Concomitant]
     Indication: Anxiety
  14. OLAZANPINE [Concomitant]
     Indication: Depression
     Dates: start: 2022
  15. VITAMIN B [Concomitant]
     Active Substance: VITAMIN B
     Indication: Product used for unknown indication
  16. BACLOFEN [Concomitant]
     Active Substance: BACLOFEN
     Indication: Muscle spasms
     Dates: start: 2022

REACTIONS (9)
  - Anaphylactic shock [Recovered/Resolved]
  - Product preparation issue [Not Recovered/Not Resolved]
  - Malaise [Unknown]
  - Fatigue [Unknown]
  - Headache [Unknown]
  - Muscle spasms [Not Recovered/Not Resolved]
  - Vitamin D decreased [Not Recovered/Not Resolved]
  - Migraine [Not Recovered/Not Resolved]
  - Autism spectrum disorder [Unknown]

NARRATIVE: CASE EVENT DATE: 20250806
